FAERS Safety Report 11509312 (Version 1)
Quarter: 2015Q3

REPORT INFORMATION
  Report Type: Spontaneous
  Country: US (occurrence: US)
  Receive Date: 20150915
  Receipt Date: 20150915
  Transmission Date: 20151125
  Serious: No
  Sender: FDA-Public Use
  Company Number: US-ASTRAZENECA-2015SE86412

PATIENT
  Sex: Female
  Weight: 70.8 kg

DRUGS (4)
  1. PULMOZYME [Concomitant]
     Active Substance: DORNASE ALFA
     Indication: CYSTIC FIBROSIS
     Dosage: TWO TIMES A DAY
     Route: 055
     Dates: start: 2012
  2. PULMOZYME [Concomitant]
     Active Substance: DORNASE ALFA
     Indication: CHRONIC OBSTRUCTIVE PULMONARY DISEASE
     Dosage: TWO TIMES A DAY
     Route: 055
     Dates: start: 2012
  3. TUDORZA PRESSAIR [Suspect]
     Active Substance: ACLIDINIUM BROMIDE
     Indication: CYSTIC FIBROSIS
     Route: 055
     Dates: start: 201506
  4. TUDORZA PRESSAIR [Suspect]
     Active Substance: ACLIDINIUM BROMIDE
     Indication: CHRONIC OBSTRUCTIVE PULMONARY DISEASE
     Route: 055
     Dates: start: 201506

REACTIONS (6)
  - Underdose [Unknown]
  - Dysgeusia [Unknown]
  - Cough [Unknown]
  - Product quality issue [Unknown]
  - Intentional product misuse [Unknown]
  - Drug dose omission [Unknown]
